FAERS Safety Report 6164163-2 (Version None)
Quarter: 2009Q2

REPORT INFORMATION
  Report Type: 
  Country: None (occurrence: None)
  Receive Date: 20090420
  Receipt Date: 20090408
  Transmission Date: 20091009
  Serious: Yes (Other)
  Sender: FDA-Public Use
  Company Number: ADR1312009

PATIENT
  Age: 2 Year
  Sex: Female

DRUGS (1)
  1. AMLODIPINE [Suspect]

REACTIONS (2)
  - LEUKOCYTOSIS [None]
  - PERITONEAL EFFLUENT LEUKOCYTE COUNT INCREASED [None]
